FAERS Safety Report 9912913 (Version 1)
Quarter: 2014Q1

REPORT INFORMATION
  Report Type: Spontaneous
  Country: GB (occurrence: None)
  Receive Date: 20140212
  Receipt Date: 20140212
  Transmission Date: 20141002
  Serious: Yes (Hospitalization)
  Sender: FDA-Public Use
  Company Number: AUR-APL-2014-01454

PATIENT
  Age: 44 Year
  Sex: Female

DRUGS (6)
  1. FLUOXETINE (FLUOXETINE) [Suspect]
     Indication: AGITATED DEPRESSION
     Dosage: 10 MG, (20 MG, 1 IN 2 D), ORAL
     Route: 048
     Dates: start: 20131130, end: 20140114
  2. FLUOXETINE (FLUOXETINE) [Suspect]
     Indication: ANXIETY DISORDER
     Dosage: 10 MG, (20 MG, 1 IN 2 D), ORAL
     Route: 048
     Dates: start: 20131130, end: 20140114
  3. FLUOXETINE (FLUOXETINE) [Suspect]
     Indication: OBSESSIVE-COMPULSIVE DISORDER
     Dosage: 10 MG, (20 MG, 1 IN 2 D), ORAL
     Route: 048
     Dates: start: 20131130, end: 20140114
  4. AMITRIPTYLINE HYDROCHLORIDE (AMITRIPTYLINE HYDROCHLORIDE)? [Concomitant]
  5. CETIRIZINE HYDROCHLORIDE (CETIRIZINE HYDROCHLORIDE) [Concomitant]
  6. RANITIDINE HYDROCHLORIDE (RANITIDINE HYDROCHLORIDE) [Concomitant]

REACTIONS (4)
  - Anxiety [None]
  - Panic attack [None]
  - Self-injurious ideation [None]
  - Suicidal ideation [None]
